FAERS Safety Report 7048215-0 (Version None)
Quarter: 2010Q4

REPORT INFORMATION
  Report Type: 
  Country: None (occurrence: None)
  Receive Date: 20101015
  Receipt Date: 20101014
  Transmission Date: 20110411
  Serious: Yes (Death, Life-Threatening, Hospitalization, Other)
  Sender: FDA-Public Use
  Company Number: PHHO2010TW12081

PATIENT
  Sex: Female
  Weight: 39 kg

DRUGS (6)
  1. AFINITOR [Suspect]
     Indication: GASTRIC CANCER
     Dosage: NO TREATMENT
  2. AFINITOR [Suspect]
     Dosage: DOUBLE BLIND
     Route: 048
     Dates: start: 20100812, end: 20100815
  3. AFINITOR [Suspect]
     Dosage: DOUBLE BLIND
     Route: 048
     Dates: start: 20100825, end: 20100830
  4. FLURBIPROFEN [Concomitant]
     Indication: PAIN
  5. LABETALOL HCL [Concomitant]
  6. AMLODIPINE [Concomitant]

REACTIONS (15)
  - ASTHENIA [None]
  - DISSEMINATED INTRAVASCULAR COAGULATION [None]
  - DYSPNOEA [None]
  - HYPERTENSION [None]
  - HYPOTENSION [None]
  - LOCAL SWELLING [None]
  - LYMPHOEDEMA [None]
  - MULTI-ORGAN FAILURE [None]
  - PANCYTOPENIA [None]
  - PYREXIA [None]
  - RESPIRATORY DISTRESS [None]
  - SEPTIC SHOCK [None]
  - SHOCK [None]
  - SOMNOLENCE [None]
  - URINARY TRACT INFECTION [None]
